FAERS Safety Report 4815136-0 (Version None)
Quarter: 2005Q4

REPORT INFORMATION
  Report Type: 
  Country: None (occurrence: None)
  Receive Date: 20051027
  Receipt Date: 20051013
  Transmission Date: 20060501
  Serious: Yes (Hospitalization)
  Sender: FDA-Public Use
  Company Number: 05US000692

PATIENT
  Age: 48 Year
  Sex: Female
  Weight: 70.8 kg

DRUGS (5)
  1. LITHIUM CARBONATE [Suspect]
     Indication: MOOD SWINGS
     Dosage: 1500 MG, QD, ORAL
     Route: 048
     Dates: start: 20040707, end: 20040713
  2. WELLBUTRIN [Concomitant]
  3. EFFEXOR XR [Concomitant]
  4. LAMOTRIGINE [Concomitant]
  5. SYNTHROID [Concomitant]

REACTIONS (9)
  - ACTIVITIES OF DAILY LIVING IMPAIRED [None]
  - BIPOLAR DISORDER [None]
  - FLIGHT OF IDEAS [None]
  - HALLUCINATION, VISUAL [None]
  - MAJOR DEPRESSION [None]
  - RESTLESSNESS [None]
  - STRESS [None]
  - TEARFULNESS [None]
  - TREMOR [None]
